FAERS Safety Report 4304394-7 (Version None)
Quarter: 2004Q1

REPORT INFORMATION
  Report Type: 
  Country: None (occurrence: None)
  Receive Date: 20040224
  Receipt Date: 20040210
  Transmission Date: 20041129
  Serious: Yes (Hospitalization)
  Sender: FDA-Public Use
  Company Number: US-JNJFOC-20040100476

PATIENT
  Age: 39 Year
  Sex: Male
  Weight: 71.6683 kg

DRUGS (21)
  1. REMICADE [Suspect]
     Indication: PERICARDITIS RHEUMATIC
     Dosage: 300 MG, 1 IN 1 TOTAL, INTRAVENOUS
     Route: 042
     Dates: start: 20021212
  2. PREDNISONE [Suspect]
     Dosage: SEE IMAGE
  3. ANALGESICS (ANALGESICS) [Concomitant]
  4. NSAIDS (NSAID'S) [Concomitant]
  5. METHOTREXATE [Concomitant]
  6. LORTAB [Concomitant]
  7. MC CONTIN (MORPHINE SULFATE) [Concomitant]
  8. FOLATE (FOLATE SODIUM) [Concomitant]
  9. CLEOCIN LOTION (CLINDAMYCIN HYDROCHLORIDE) [Concomitant]
  10. KLONOPIN [Concomitant]
  11. CELEXA [Concomitant]
  12. NEXIUM [Concomitant]
  13. CALCIUM + D (CALCIUM) [Concomitant]
  14. TYLENOL [Concomitant]
  15. PROTONIX [Concomitant]
  16. BACTRIM DS [Concomitant]
  17. BENICAR [Concomitant]
  18. FORTEO (HYDROXOCOBALAMIN) [Concomitant]
  19. EFFEXOR [Concomitant]
  20. AVINZA [Concomitant]
  21. SEROQUEL [Concomitant]

REACTIONS (5)
  - ARTHRALGIA [None]
  - COMPRESSION FRACTURE [None]
  - FALL [None]
  - OSTEOPOROSIS [None]
  - SPINAL FRACTURE [None]
